FAERS Safety Report 4335042-8 (Version None)
Quarter: 2004Q2

REPORT INFORMATION
  Report Type: 
  Country: None (occurrence: None)
  Receive Date: 20040408
  Receipt Date: 20040311
  Transmission Date: 20050107
  Serious: Yes (Hospitalization)
  Sender: FDA-Public Use
  Company Number: FR-GLAXOSMITHKLINE-B0326492A

PATIENT
  Age: 40 Year
  Sex: Male
  Weight: 95 kg

DRUGS (5)
  1. ZIAGEN [Suspect]
     Indication: HIV INFECTION
     Dosage: 2UNIT PER DAY
     Route: 048
     Dates: start: 20031114, end: 20031215
  2. VIDEX [Suspect]
     Indication: HIV INFECTION
     Dosage: 400MG PER DAY
     Route: 048
     Dates: start: 20031114, end: 20031215
  3. VIRACEPT [Concomitant]
     Indication: HIV INFECTION
     Dosage: 1250MG TWICE PER DAY
     Route: 048
     Dates: start: 20031114
  4. EPIVIR [Concomitant]
     Indication: HIV INFECTION
     Route: 048
     Dates: start: 20031217
  5. VIREAD [Concomitant]
     Indication: HIV INFECTION
     Route: 048
     Dates: start: 20031217

REACTIONS (2)
  - HEPATITIS [None]
  - JAUNDICE [None]
